FAERS Safety Report 7099921-3 (Version None)
Quarter: 2010Q4

REPORT INFORMATION
  Report Type: 
  Country: None (occurrence: None)
  Receive Date: 20101112
  Receipt Date: 20090115
  Transmission Date: 20110411
  Serious: No
  Sender: FDA-Public Use
  Company Number: US-KINGPHARMUSA00001-K200900040

PATIENT
  Sex: Female

DRUGS (3)
  1. LEVOXYL [Suspect]
     Indication: AUTOIMMUNE THYROIDITIS
     Dosage: 112 MCG, UNK
     Route: 048
     Dates: start: 20040101
  2. ANTIHISTAMINES [Concomitant]
     Dosage: UNK
  3. DIURETICS [Concomitant]
     Dosage: UNK

REACTIONS (5)
  - FLUSHING [None]
  - PRURITUS [None]
  - RASH [None]
  - SWELLING FACE [None]
  - URTICARIA [None]
